FAERS Safety Report 24203400 (Version 1)
Quarter: 2024Q3

REPORT INFORMATION
  Report Type: Report from Study
  Country: CL (occurrence: CL)
  Receive Date: 20240813
  Receipt Date: 20240813
  Transmission Date: 20241017
  Serious: Yes (Other)
  Sender: ROCHE
  Company Number: CL-ROCHE-10000048133

PATIENT
  Age: 75 Year
  Sex: Female
  Weight: 58.0 kg

DRUGS (11)
  1. VABYSMO [Suspect]
     Active Substance: FARICIMAB\FARICIMAB-SVOA
     Indication: Age-related macular degeneration
     Dosage: VABYSMO/FARICIMAB 6 MG?(0.05)
     Route: 050
  2. LOSARTAN POTASSIUM [Concomitant]
     Active Substance: LOSARTAN POTASSIUM
     Dosage: 1/2 TABLET OF 50MG AND 1/2 TABLET OF 50 MG AT NIGHT
  3. ATORVASTATIN [Concomitant]
     Active Substance: ATORVASTATIN
     Dosage: 10 MG EVERY 24 HOURS
  4. QUETIAPINE [Concomitant]
     Active Substance: QUETIAPINE
     Dosage: A QUARTER AT NIGHT
  5. DILASEDAN [Concomitant]
     Dosage: 1 QUARTER, SOS
  6. OMEGA 3 [Concomitant]
     Active Substance: CAPSAICIN
     Dosage: DOSE WAS NOT REPORTED
  7. VITAMIN E [Concomitant]
     Active Substance: .ALPHA.-TOCOPHEROL
     Dosage: DOSE AND FREQUENCY WERE NOT REPORTED
  8. VITAMIN D [Concomitant]
     Active Substance: VITAMIN D NOS
     Dosage: ONCE A WEEK FOR 3 MONTHS
  9. CREATINE [Concomitant]
     Active Substance: CREATINE
     Dosage: DOSE AND FREQUENCY WERE NOT REPORTED
  10. ANTIOXIDANTS [Concomitant]
     Dosage: DOSE AND FREQUENCY WERE NOT REPORTED
  11. TIBOLONE [Concomitant]
     Active Substance: TIBOLONE
     Dosage: FREQUENCY: ONCE EVERY OTHER DAY
     Dates: end: 202407

REACTIONS (6)
  - Drug ineffective [Unknown]
  - Blindness [Not Recovered/Not Resolved]
  - Conjunctivitis [Recovering/Resolving]
  - Anxiety [Not Recovered/Not Resolved]
  - Emotional disorder [Unknown]
  - Central vision loss [Unknown]

NARRATIVE: CASE EVENT DATE: 20240701
